FAERS Safety Report 9410859 (Version 1)
Quarter: 2013Q3

REPORT INFORMATION
  Report Type: Spontaneous
  Country: AU (occurrence: AU)
  Receive Date: 20130719
  Receipt Date: 20130719
  Transmission Date: 20140515
  Serious: Yes (Hospitalization)
  Sender: FDA-Public Use
  Company Number: AU-MERCK-1307AUS009286

PATIENT
  Age: 12 Year
  Sex: Female

DRUGS (2)
  1. LORATADINE [Suspect]
     Dosage: 10 MG, UNK
     Route: 048
  2. PANADOL [Suspect]
     Dosage: 2 X
     Route: 048

REACTIONS (1)
  - Hallucination [Unknown]
